FAERS Safety Report 5962642-1 (Version None)
Quarter: 2008Q4

REPORT INFORMATION
  Report Type: 
  Country: None (occurrence: None)
  Receive Date: 20081121
  Receipt Date: 20081118
  Transmission Date: 20090506
  Serious: Yes (Death, Other)
  Sender: FDA-Public Use
  Company Number: PHHY2008DE28895

PATIENT
  Sex: Male
  Weight: 60 kg

DRUGS (5)
  1. ZOMETA [Suspect]
     Indication: METASTASES TO BONE
     Dosage: 4 MG EVERY 4 WEEKS
     Route: 042
     Dates: start: 20030101, end: 20070608
  2. ZOMETA [Suspect]
     Indication: PROSTATE CANCER
  3. TRAMADOL HCL [Concomitant]
     Indication: PROSTATE CANCER
     Dosage: 150 MG DAILY
     Route: 048
     Dates: start: 20051018, end: 20070201
  4. UROTRACTAN [Concomitant]
     Indication: PROSTATE CANCER
     Dosage: 100 MG/DAY
     Route: 048
     Dates: start: 20060126, end: 20070601
  5. IBUPROFEN TABLETS [Concomitant]
     Indication: PROSTATE CANCER
     Dosage: 600 MG/DAY
     Route: 048
     Dates: start: 20060320, end: 20070301

REACTIONS (2)
  - OSTEONECROSIS [None]
  - PROSTATE CANCER METASTATIC [None]
